FAERS Safety Report 6890146-0 (Version None)
Quarter: 2010Q3

REPORT INFORMATION
  Report Type: 
  Country: None (occurrence: None)
  Receive Date: 20100730
  Receipt Date: 20080812
  Transmission Date: 20110219
  Serious: Yes (Other)
  Sender: FDA-Public Use
  Company Number: US-PFIZER INC-2006001315

PATIENT
  Sex: Male
  Weight: 68 kg

DRUGS (2)
  1. LIPITOR [Suspect]
     Indication: BLOOD CHOLESTEROL INCREASED
  2. HERBAL PREPARATION [Suspect]

REACTIONS (10)
  - ABDOMINAL PAIN UPPER [None]
  - AMNESIA [None]
  - ARTHRALGIA [None]
  - BLOOD POTASSIUM INCREASED [None]
  - CONSTIPATION [None]
  - FLATULENCE [None]
  - LIPOPROTEIN (A) INCREASED [None]
  - MYALGIA [None]
  - PAIN [None]
  - PAIN IN EXTREMITY [None]
